FAERS Safety Report 13417776 (Version 2)
Quarter: 2017Q2

REPORT INFORMATION
  Report Type: Spontaneous
  Country: US (occurrence: US)
  Receive Date: 20170406
  Receipt Date: 20170523
  Transmission Date: 20170830
  Serious: Yes (Hospitalization, Other)
  Sender: FDA-Public Use
  Company Number: US-009507513-1704USA000002

PATIENT
  Age: 74 Year
  Sex: Male

DRUGS (6)
  1. CUBICIN [Suspect]
     Active Substance: DAPTOMYCIN
     Indication: ENDOCARDITIS STAPHYLOCOCCAL
     Dosage: UNK
  2. CUBICIN [Suspect]
     Active Substance: DAPTOMYCIN
     Dosage: 500 MG (8MG/KG) AFTER DIALYSIS ON MONDAYS AND WEDNESDAYS
  3. CUBICIN [Suspect]
     Active Substance: DAPTOMYCIN
     Dosage: 750 MG, AFTER DIALYSIS ON FRIDAYS
  4. VANCOMYCIN [Suspect]
     Active Substance: VANCOMYCIN
     Indication: ENDOCARDITIS STAPHYLOCOCCAL
     Dosage: MULTIPLE COURSES OF VANCOMYCIN / 2-WEEKLONG COURSE OF VANCOMYCIN
  5. GENTAMICIN SULFATE. [Suspect]
     Active Substance: GENTAMICIN SULFATE
     Indication: ENDOCARDITIS STAPHYLOCOCCAL
     Dosage: 6 WEEKS OF GENTAMICIN
  6. GENTAMICIN SULFATE. [Suspect]
     Active Substance: GENTAMICIN SULFATE
     Dosage: 120 MG POST HEMODIALYSIS

REACTIONS (2)
  - Treatment failure [Unknown]
  - Pathogen resistance [Unknown]
